FAERS Safety Report 14088666 (Version 1)
Quarter: 2017Q4

REPORT INFORMATION
  Report Type: Spontaneous
  Country: US (occurrence: US)
  Receive Date: 20171013
  Receipt Date: 20171013
  Transmission Date: 20180321
  Serious: Yes (Other)
  Sender: FDA-Public Use
  Company Number: US-SA-2017SA198179

PATIENT
  Age: 77 Year
  Sex: Female
  Weight: 140.61 kg

DRUGS (1)
  1. PLAVIX [Suspect]
     Active Substance: CLOPIDOGREL BISULFATE
     Indication: HAEMORRHAGE
     Route: 048

REACTIONS (2)
  - Heart rate irregular [Unknown]
  - Unevaluable event [Unknown]
